FAERS Safety Report 16969373 (Version 1)
Quarter: 2020Q3

REPORT INFORMATION
  Report Type: Report from Study
  Country: US (occurrence: US)
  Receive Date: 20191029
  Receipt Date: 20191029
  Transmission Date: 20201105
  Serious: Yes (Hospitalization)
  Sender: FDA-Public Use
  Company Number: US-MYLANLABS-2019M1101310

PATIENT
  Age: 31 Year
  Sex: Female

DRUGS (3)
  1. EPHEDRINE. [Suspect]
     Active Substance: EPHEDRINE
     Indication: BLOOD PRESSURE DECREASED
     Dosage: TOTAL DOSE: 70MG
     Route: 040
  2. PHENYLEPHRINE [Suspect]
     Active Substance: PHENYLEPHRINE HYDROCHLORIDE
     Indication: BLOOD PRESSURE DECREASED
     Dosage: TOTAL DOSE: 2000 MICRO GRAM
     Route: 040
  3. LIDOCAINE. [Suspect]
     Active Substance: LIDOCAINE
     Indication: EPIDURAL ANAESTHESIA
     Dosage: 10 ML BOLUS OF LIDOCAINE 2%
     Route: 008

REACTIONS (3)
  - Dyspnoea [Recovered/Resolved]
  - Maternal exposure during delivery [Recovered/Resolved]
  - Blood pressure decreased [Recovered/Resolved]
